FAERS Safety Report 25776851 (Version 1)
Quarter: 2025Q3

REPORT INFORMATION
  Report Type: Spontaneous
  Country: US (occurrence: US)
  Receive Date: 20250909
  Receipt Date: 20250909
  Transmission Date: 20251021
  Serious: No
  Sender: DOMPE FARMACEUTICI
  Company Number: US-FARMAPROD-202409-3241

PATIENT
  Sex: Female

DRUGS (8)
  1. OXERVATE [Suspect]
     Active Substance: CENEGERMIN-BKBJ
     Indication: Neurotrophic keratopathy
     Route: 047
     Dates: start: 20240827, end: 20241022
  2. OXERVATE [Suspect]
     Active Substance: CENEGERMIN-BKBJ
     Route: 047
     Dates: start: 20241212
  3. PRED FORTE [Concomitant]
     Active Substance: PREDNISOLONE ACETATE
  4. VALTREX [Concomitant]
     Active Substance: VALACYCLOVIR HYDROCHLORIDE
  5. DIAZEPAM [Concomitant]
     Active Substance: DIAZEPAM
  6. REFRESH RELIEVA PF [Concomitant]
     Active Substance: CARBOXYMETHYLCELLULOSE SODIUM\GLYCERIN
  7. MOXIFLOXACIN [Concomitant]
     Active Substance: MOXIFLOXACIN
  8. ADVIL [Concomitant]
     Active Substance: IBUPROFEN

REACTIONS (3)
  - Eye pain [Unknown]
  - Ocular hyperaemia [Unknown]
  - Headache [Unknown]
